FAERS Safety Report 19779160 (Version 1)
Quarter: 2021Q3

REPORT INFORMATION
  Report Type: Spontaneous
  Country: US (occurrence: US)
  Receive Date: 20210902
  Receipt Date: 20210902
  Transmission Date: 20211014
  Serious: Yes (Other)
  Sender: FDA-Public Use
  Company Number: US-BIOHAVEN PHARMACEUTICALS-2021BHV01087

PATIENT
  Age: 63 Year
  Sex: Female
  Weight: 80.73 kg

DRUGS (34)
  1. UNSPECIFIED OPIOIDS [Suspect]
     Active Substance: UNSPECIFIED INGREDIENT
     Indication: PAIN
     Dosage: UNK
     Dates: end: 2021
  2. CARTIA [Concomitant]
  3. FENTANYL TRANSDERMAL SYSTEM [Suspect]
     Active Substance: FENTANYL
     Indication: PAIN
     Dosage: UNK
  4. BYSTOLIC [Concomitant]
     Active Substance: NEBIVOLOL HYDROCHLORIDE
  5. ZETIA [Concomitant]
     Active Substance: EZETIMIBE
  6. OMEGA 3 [Concomitant]
     Active Substance: OMEGA-3 FATTY ACIDS
  7. UNSPECIFIED OPIOIDS [Suspect]
     Active Substance: UNSPECIFIED INGREDIENT
     Dosage: UNK DECREASED DOSE ANYWHERE FROM 10?50 MG A DAY
     Dates: start: 2021
  8. SYMBICORT [Concomitant]
     Active Substance: BUDESONIDE\FORMOTEROL FUMARATE DIHYDRATE
  9. PANTOPRAZOLE [Concomitant]
     Active Substance: PANTOPRAZOLE
  10. BOTOX [Concomitant]
     Active Substance: ONABOTULINUMTOXINA
     Dosage: UNK EVERY 10 WEEKS
  11. JARDIANCE [Concomitant]
     Active Substance: EMPAGLIFLOZIN
  12. MONTELUKAST [Concomitant]
     Active Substance: MONTELUKAST SODIUM
  13. TIZANIDINE. [Concomitant]
     Active Substance: TIZANIDINE
  14. LACTULOSE. [Concomitant]
     Active Substance: LACTULOSE
  15. FLECTOR [Concomitant]
     Active Substance: DICLOFENAC EPOLAMINE
  16. QUININE [Concomitant]
     Active Substance: QUININE
  17. VENTOLIN [Concomitant]
     Active Substance: ALBUTEROL SULFATE
  18. FOLIC ACID. [Concomitant]
     Active Substance: FOLIC ACID
  19. SPRIRONOLACTONE [Concomitant]
  20. DIAZEPAM. [Concomitant]
     Active Substance: DIAZEPAM
  21. MYRBETRIQ [Concomitant]
     Active Substance: MIRABEGRON
  22. LEVOTHYROXINE. [Concomitant]
     Active Substance: LEVOTHYROXINE
  23. CLONODINE PATCH [Concomitant]
  24. SPRIX [Concomitant]
     Active Substance: KETOROLAC TROMETHAMINE
  25. SERTRALINE [Concomitant]
     Active Substance: SERTRALINE HYDROCHLORIDE
  26. OXYCODONE [Concomitant]
     Active Substance: OXYCODONE
  27. LIDOCAINE PATCH [Concomitant]
     Active Substance: LIDOCAINE
  28. NURTEC ODT [Suspect]
     Active Substance: RIMEGEPANT SULFATE
     Indication: MIGRAINE
     Dosage: 1 TABLET, 1X/DAY, AS NEEDED
     Route: 048
     Dates: start: 2021
  29. TORSEMIDE. [Concomitant]
     Active Substance: TORSEMIDE
  30. ASPIRIN. [Concomitant]
     Active Substance: ASPIRIN
  31. COMPAZINE [Concomitant]
     Active Substance: PROCHLORPERAZINE MALEATE
  32. EMGALITY [Concomitant]
     Active Substance: GALCANEZUMAB-GNLM
  33. PRIMROSE [Concomitant]
  34. VITAMIN D3 [Concomitant]
     Active Substance: CHOLECALCIFEROL

REACTIONS (5)
  - Kidney infection [Not Recovered/Not Resolved]
  - Nephritis [Not Recovered/Not Resolved]
  - Drug withdrawal syndrome [Recovered/Resolved]
  - Nephrolithiasis [Not Recovered/Not Resolved]
  - Migraine [Not Recovered/Not Resolved]

NARRATIVE: CASE EVENT DATE: 2021
